FAERS Safety Report 17059509 (Version 1)
Quarter: 2019Q4

REPORT INFORMATION
  Report Type: Spontaneous
  Country: DE (occurrence: DE)
  Receive Date: 20191121
  Receipt Date: 20191121
  Transmission Date: 20200122
  Serious: Yes (Other)
  Sender: FDA-Public Use
  Company Number: DE-009507513-1911DEU004056

PATIENT
  Age: 82 Year
  Sex: Female

DRUGS (1)
  1. LORZAAR PLUS 50/12,5 MG FILMTABLETTEN [Suspect]
     Active Substance: HYDROCHLOROTHIAZIDE\LOSARTAN POTASSIUM
     Indication: BLOOD PRESSURE INCREASED
     Dosage: UNK
     Route: 048

REACTIONS (7)
  - Tongue disorder [Unknown]
  - Hypersensitivity [Unknown]
  - Dysphagia [Unknown]
  - Stomatitis [Unknown]
  - Pharyngeal swelling [Unknown]
  - Mouth swelling [Unknown]
  - Swollen tongue [Unknown]
